FAERS Safety Report 9113478 (Version 1)
Quarter: 2013Q1

REPORT INFORMATION
  Report Type: Spontaneous
  Country: US (occurrence: US)
  Receive Date: 20130129
  Receipt Date: 20130129
  Transmission Date: 20140127
  Serious: No
  Sender: FDA-Public Use
  Company Number: US-009507513-2012SP025911

PATIENT
  Sex: Female
  Weight: 92.63 kg

DRUGS (2)
  1. CLARITIN-D 12 HOUR [Suspect]
     Indication: HYPERSENSITIVITY
     Dosage: 5 MG, BID
     Route: 048
     Dates: start: 20120324, end: 20120325
  2. CLARITIN-D 12 HOUR [Suspect]
     Indication: SEASONAL ALLERGY

REACTIONS (2)
  - Therapeutic product ineffective [Not Recovered/Not Resolved]
  - Blood pressure increased [Recovered/Resolved]
